FAERS Safety Report 11540147 (Version 1)
Quarter: 2015Q3

REPORT INFORMATION
  Report Type: Spontaneous
  Country: US (occurrence: US)
  Receive Date: 20150923
  Receipt Date: 20150923
  Transmission Date: 20151125
  Serious: No
  Sender: FDA-Public Use
  Company Number: US-TEVA-594802USA

PATIENT
  Age: 5 Year
  Sex: Female

DRUGS (1)
  1. PROGLYCEM SUSPENSION [Suspect]
     Active Substance: DIAZOXIDE
     Route: 048

REACTIONS (5)
  - Decreased appetite [Unknown]
  - Drug dose omission [Unknown]
  - Blood glucose decreased [Unknown]
  - Product taste abnormal [Unknown]
  - Dysgeusia [Unknown]

NARRATIVE: CASE EVENT DATE: 201507
